FAERS Safety Report 12073307 (Version 3)
Quarter: 2016Q2

REPORT INFORMATION
  Report Type: Report from Study
  Country: NZ (occurrence: NZ)
  Receive Date: 20160212
  Receipt Date: 20160405
  Transmission Date: 20160815
  Serious: Yes (Hospitalization)
  Sender: FDA-Public Use
  Company Number: NZ-ABBVIE-16K-118-1553673-00

PATIENT
  Age: 34 Year
  Sex: Female

DRUGS (3)
  1. HUMIRA [Suspect]
     Active Substance: ADALIMUMAB
     Indication: CROHN^S DISEASE
     Dosage: TWO INJECTIONS, INITIAL DOSE
     Route: 058
     Dates: start: 20160128, end: 20160128
  2. HUMIRA [Suspect]
     Active Substance: ADALIMUMAB
     Route: 058
     Dates: start: 201602
  3. HUMIRA [Suspect]
     Active Substance: ADALIMUMAB
     Dosage: TWO INJECTIONS
     Route: 058
     Dates: start: 20160129, end: 20160129

REACTIONS (8)
  - Flat affect [Unknown]
  - Injection site pain [Unknown]
  - Abdominal pain [Unknown]
  - Pain [Unknown]
  - Adverse drug reaction [Unknown]
  - Fatigue [Unknown]
  - Lethargy [Unknown]
  - Myalgia [Unknown]

NARRATIVE: CASE EVENT DATE: 2016
